FAERS Safety Report 21574905 (Version 1)
Quarter: 2022Q4

REPORT INFORMATION
  Report Type: Spontaneous
  Country: US (occurrence: US)
  Receive Date: 20221110
  Receipt Date: 20221110
  Transmission Date: 20230112
  Serious: Yes (Congenital Anomaly, Other)
  Sender: FDA-Public Use
  Company Number: US-SPECGX-T202202279

PATIENT

DRUGS (1)
  1. BUPRENORPHINE\NALOXONE [Suspect]
     Active Substance: BUPRENORPHINE\NALOXONE
     Indication: Product used for unknown indication
     Dosage: UNK
     Route: 064

REACTIONS (5)
  - Cleft palate [Unknown]
  - Otospondylomegaepiphyseal dysplasia [Unknown]
  - Phimosis [Unknown]
  - Conductive deafness [Unknown]
  - Foetal exposure during pregnancy [Unknown]
